FAERS Safety Report 9338754 (Version 1)
Quarter: 2013Q2

REPORT INFORMATION
  Report Type: Spontaneous
  Country: US (occurrence: US)
  Receive Date: 20130610
  Receipt Date: 20130610
  Transmission Date: 20140414
  Serious: Yes (Other)
  Sender: FDA-Public Use
  Company Number: US-PFIZER INC-2013172364

PATIENT
  Age: 53 Year
  Sex: Female

DRUGS (1)
  1. XALKORI [Suspect]
     Dosage: 250 MG, 2X/DAY (1 CAPSULE TWICE A DAY BY MOUTH)
     Route: 048

REACTIONS (4)
  - Confusional state [Unknown]
  - Dystonia [Unknown]
  - Pyrexia [Unknown]
  - Hyperhidrosis [Unknown]
